FAERS Safety Report 4814689-6 (Version None)
Quarter: 2005Q4

REPORT INFORMATION
  Report Type: 
  Country: None (occurrence: None)
  Receive Date: 20051028
  Receipt Date: 20041214
  Transmission Date: 20060501
  Serious: No
  Sender: FDA-Public Use
  Company Number: US-GLAXOSMITHKLINE-A0537264A

PATIENT
  Sex: Female

DRUGS (16)
  1. ADVAIR DISKUS 100/50 [Suspect]
     Indication: ASTHMA
     Dosage: 1PUFF TWICE PER DAY
     Route: 055
  2. SOTALOL [Concomitant]
  3. CHEMOTHERAPY [Concomitant]
  4. PRAVACHOL [Concomitant]
  5. ASPIRIN [Concomitant]
  6. WARFARIN [Concomitant]
  7. ALTACE [Concomitant]
  8. NEXIUM [Concomitant]
  9. TOPROL-XL [Concomitant]
  10. ALBUTEROL [Concomitant]
  11. CELEBREX [Concomitant]
  12. VITAMIN A [Concomitant]
  13. ES TYLENOL [Concomitant]
  14. GLUCOSAMINE [Concomitant]
  15. VITAMIN B COMPLEX CAP [Concomitant]
  16. VITAMIN E [Concomitant]

REACTIONS (1)
  - COUGH [None]
